FAERS Safety Report 16664004 (Version 1)
Quarter: 2019Q3

REPORT INFORMATION
  Report Type: Spontaneous
  Country: DE (occurrence: DE)
  Receive Date: 20190802
  Receipt Date: 20190802
  Transmission Date: 20191004
  Serious: Yes (Other)
  Sender: FDA-Public Use
  Company Number: DE-JNJFOC-20190737253

PATIENT
  Age: 56 Year
  Sex: Female

DRUGS (1)
  1. VERMOX [Suspect]
     Active Substance: MEBENDAZOLE
     Indication: ENTEROBIASIS
     Route: 048

REACTIONS (4)
  - Abdominal pain upper [Unknown]
  - Visual impairment [Unknown]
  - Renal pain [Unknown]
  - Angina pectoris [Unknown]
